FAERS Safety Report 15274949 (Version 1)
Quarter: 2018Q3

REPORT INFORMATION
  Report Type: Spontaneous
  Country: US (occurrence: US)
  Receive Date: 20180814
  Receipt Date: 20180814
  Transmission Date: 20181010
  Serious: No
  Sender: FDA-Public Use
  Company Number: US-BAYER-2018-150924

PATIENT
  Age: 85 Year
  Sex: Female
  Weight: 61 kg

DRUGS (9)
  1. MIRALAX [Suspect]
     Active Substance: POLYETHYLENE GLYCOL 3350
     Indication: GASTROINTESTINAL DISORDER
     Dosage: 1?2 TEASPOONS AS NEEDED TEASPOON
     Route: 048
  2. COLACE [Concomitant]
     Active Substance: DOCUSATE SODIUM
  3. MEMANTINE. [Concomitant]
     Active Substance: MEMANTINE
  4. FENTANYL. [Concomitant]
     Active Substance: FENTANYL
  5. OXYCODONE [Concomitant]
     Active Substance: OXYCODONE
  6. SENNA GLYCOSIDES [Concomitant]
  7. SENNA [Concomitant]
     Active Substance: SENNA LEAF\SENNOSIDES\SENNOSIDES A AND B
  8. VITAMINS NOS [Concomitant]
     Active Substance: VITAMINS
  9. AMLODIPINE [Concomitant]
     Active Substance: AMLODIPINE BESYLATE

REACTIONS (3)
  - Product use issue [Unknown]
  - Incorrect dose administered [Unknown]
  - Wrong technique in product usage process [Unknown]

NARRATIVE: CASE EVENT DATE: 2018
